FAERS Safety Report 24446964 (Version 1)
Quarter: 2024Q4

REPORT INFORMATION
  Report Type: Spontaneous
  Country: US (occurrence: US)
  Receive Date: 20241016
  Receipt Date: 20241016
  Transmission Date: 20250114
  Serious: Yes (Hospitalization, Other)
  Sender: NOVO NORDISK
  Company Number: US-NOVOPROD-1276545

PATIENT
  Sex: Male

DRUGS (1)
  1. SOGROYA [Suspect]
     Active Substance: SOMAPACITAN\SOMAPACITAN-BECO
     Indication: Product used for unknown indication
     Dosage: 2.5 MG
     Route: 058
     Dates: start: 202407

REACTIONS (2)
  - Papilloedema [Recovered/Resolved]
  - Intracranial pressure increased [Recovered/Resolved]
